FAERS Safety Report 8103882 (Version 2)
Quarter: 2014Q1

REPORT INFORMATION
  Report Type: Spontaneous
  Country: AU (occurrence: AU)
  Receive Date: 20110824
  Receipt Date: 20140217
  Transmission Date: 20141002
  Serious: No
  Sender: FDA-Public Use
  Company Number: AU-ROCHE-797464

PATIENT
  Age: 65 Year
  Sex: Female

DRUGS (2)
  1. ACTEMRA [Suspect]
     Indication: RHEUMATOID ARTHRITIS
     Route: 042
     Dates: start: 20110415, end: 20110708
  2. CELEBREX [Concomitant]

REACTIONS (3)
  - Skin ulcer [Not Recovered/Not Resolved]
  - Depression [Unknown]
  - Arthralgia [Unknown]
